FAERS Safety Report 13784274 (Version 1)
Quarter: 2017Q3

REPORT INFORMATION
  Report Type: Spontaneous
  Country: IT (occurrence: IT)
  Receive Date: 20170724
  Receipt Date: 20170724
  Transmission Date: 20171127
  Serious: Yes (Hospitalization)
  Sender: FDA-Public Use
  Company Number: PHHY2017IT104984

PATIENT
  Age: 84 Year
  Sex: Female

DRUGS (6)
  1. LIPOSOM [Concomitant]
     Indication: MOOD ALTERED
     Dosage: UNK
     Route: 065
     Dates: start: 20170627
  2. ADEMETIONINE [Concomitant]
     Active Substance: ADEMETIONINE
     Indication: MOOD ALTERED
     Dosage: UNK
     Route: 065
     Dates: start: 20170627
  3. LAMOTRIGINE. [Concomitant]
     Active Substance: LAMOTRIGINE
     Indication: PRODUCT USED FOR UNKNOWN INDICATION
     Route: 065
  4. CONGESCOR [Concomitant]
     Active Substance: BISOPROLOL
     Indication: PRODUCT USED FOR UNKNOWN INDICATION
     Route: 065
  5. DIURESIX [Concomitant]
     Active Substance: TORSEMIDE
     Indication: PRODUCT USED FOR UNKNOWN INDICATION
     Route: 065
  6. SERTRALINE [Suspect]
     Active Substance: SERTRALINE HYDROCHLORIDE
     Indication: MOOD ALTERED
     Dosage: UNK
     Route: 065
     Dates: start: 20170627

REACTIONS (4)
  - Loss of consciousness [Unknown]
  - Blindness [Unknown]
  - Dysphagia [Unknown]
  - Petit mal epilepsy [Unknown]

NARRATIVE: CASE EVENT DATE: 20170704
